FAERS Safety Report 12853970 (Version 2)
Quarter: 2016Q4

REPORT INFORMATION
  Report Type: Report from Study
  Country: JP (occurrence: JP)
  Receive Date: 20161017
  Receipt Date: 20161129
  Transmission Date: 20170207
  Serious: Yes (Other)
  Sender: FDA-Public Use
  Company Number: JP-ROCHE-1823353

PATIENT
  Age: 66 Year
  Sex: Male
  Weight: 60 kg

DRUGS (31)
  1. MAGMITT [Concomitant]
     Active Substance: MAGNESIUM OXIDE
     Route: 048
     Dates: start: 20160308, end: 20160402
  2. OXYCONTIN [Concomitant]
     Active Substance: OXYCODONE HYDROCHLORIDE
     Route: 048
     Dates: start: 20160303, end: 20160317
  3. OXYCONTIN [Concomitant]
     Active Substance: OXYCODONE HYDROCHLORIDE
     Route: 048
     Dates: start: 20160318, end: 20160325
  4. APIDRA [Concomitant]
     Active Substance: INSULIN GLULISINE
     Dosage: DOSAGE (UNIT UNCERTAINTY) DURING A DAY: 6-8-4
     Route: 058
  5. AZUNOL [Concomitant]
     Active Substance: SODIUM GUALENATE
     Indication: MALIGNANT MELANOMA
     Route: 003
     Dates: start: 20160520
  6. PASTARON [Concomitant]
     Active Substance: UREA
     Indication: MALIGNANT MELANOMA
     Route: 003
     Dates: start: 20160726
  7. TAKECAB [Concomitant]
     Active Substance: VONOPRAZAN FUMURATE
     Route: 048
     Dates: start: 20160802
  8. VEMURAFENIB [Suspect]
     Active Substance: VEMURAFENIB
     Indication: MALIGNANT MELANOMA
     Route: 048
     Dates: start: 20160303, end: 20160614
  9. VEMURAFENIB [Suspect]
     Active Substance: VEMURAFENIB
     Indication: MALIGNANT MELANOMA
     Route: 048
     Dates: start: 20160615, end: 20160809
  10. REBAMIPIDE [Concomitant]
     Active Substance: REBAMIPIDE
     Route: 048
     Dates: start: 20160119, end: 20160604
  11. HIRUDOID (HEPARINOIDS) [Concomitant]
     Indication: PROPHYLAXIS
     Route: 003
     Dates: start: 20160318
  12. NEXIUM [Concomitant]
     Active Substance: ESOMEPRAZOLE MAGNESIUM
     Route: 048
     Dates: start: 20160227, end: 20160305
  13. PETROLATUM SALICYLATE [Concomitant]
     Indication: MALIGNANT MELANOMA
     Route: 003
     Dates: start: 20160809
  14. PROMAC (JAPAN) [Concomitant]
     Route: 048
     Dates: start: 20160614, end: 20160726
  15. MINOCYCLINE HYDROCHLORIDE. [Concomitant]
     Active Substance: MINOCYCLINE HYDROCHLORIDE
     Indication: MALIGNANT MELANOMA
     Route: 048
     Dates: start: 20160802, end: 20160809
  16. CRAVIT [Concomitant]
     Active Substance: LEVOFLOXACIN
     Route: 065
     Dates: start: 20160719, end: 20160802
  17. VEMURAFENIB [Suspect]
     Active Substance: VEMURAFENIB
     Indication: MALIGNANT MELANOMA
     Route: 048
     Dates: start: 20160810, end: 20160823
  18. SENNOSIDE [Concomitant]
     Active Substance: SENNOSIDES
     Dosage: TAKEN FOR CONSTIPATION
     Route: 048
     Dates: start: 20160303, end: 20160303
  19. ACUATIM [Concomitant]
     Active Substance: NADIFLOXACIN
     Indication: PROPHYLAXIS
     Route: 003
     Dates: start: 20160308
  20. NOVAMIN (JAPAN) [Concomitant]
     Route: 048
     Dates: start: 20160222, end: 20160318
  21. OXINORM (JAPAN) [Concomitant]
     Active Substance: OXYCODONE HYDROCHLORIDE
     Dosage: WHEN HURTING
     Route: 048
     Dates: start: 20160303, end: 20160303
  22. ANTEBATE [Concomitant]
     Active Substance: BETAMETHASONE DIPROPIONATE
     Indication: PROPHYLAXIS
     Route: 003
     Dates: start: 20160318
  23. LOCOID [Concomitant]
     Active Substance: HYDROCORTISONE BUTYRATE
     Indication: MALIGNANT MELANOMA
     Route: 003
     Dates: start: 20160520
  24. LOXOPROFEN [Concomitant]
     Active Substance: LOXOPROFEN
     Route: 048
     Dates: start: 20160104, end: 20160526
  25. TALION (JAPAN) [Concomitant]
     Active Substance: BEPOTASTINE
     Indication: PROPHYLAXIS
     Dosage: REPORTED AS TALION OD
     Route: 048
     Dates: start: 20160318, end: 20160702
  26. LANTUS [Concomitant]
     Active Substance: INSULIN GLARGINE
     Dosage: DOSAGE (UNIT UNCERTAINTY) DURING A DAY: 0-0-0-8
     Route: 058
  27. PROPETO [Concomitant]
     Indication: MALIGNANT MELANOMA
     Route: 065
     Dates: start: 20160520, end: 20160607
  28. LIDOMEX [Concomitant]
     Active Substance: PREDNISOLONE VALERATE ACETATE
     Indication: MALIGNANT MELANOMA
     Route: 003
     Dates: start: 20160520, end: 20160607
  29. AVAPRO [Concomitant]
     Active Substance: IRBESARTAN
     Route: 048
     Dates: start: 20160119, end: 20160408
  30. NIPOLAZIN [Concomitant]
     Indication: PROPHYLAXIS
     Route: 048
     Dates: start: 20160520
  31. JANUVIA [Concomitant]
     Active Substance: SITAGLIPTIN PHOSPHATE
     Route: 048
     Dates: start: 20160309

REACTIONS (6)
  - Pneumonia [Recovering/Resolving]
  - Pneumonia [Unknown]
  - Organising pneumonia [Recovering/Resolving]
  - Liver disorder [Recovering/Resolving]
  - Dysgeusia [Recovering/Resolving]
  - Erythema nodosum [Recovering/Resolving]

NARRATIVE: CASE EVENT DATE: 20160311
